FAERS Safety Report 23883615 (Version 5)
Quarter: 2025Q4

REPORT INFORMATION
  Report Type: Spontaneous
  Country: JP (occurrence: JP)
  Receive Date: 20240522
  Receipt Date: 20251128
  Transmission Date: 20260117
  Serious: Yes (Death, Other)
  Sender: ALEXION PHARMACEUTICALS
  Company Number: 2024A118326

PATIENT
  Age: 50 Year
  Sex: Male
  Weight: 83 kg

DRUGS (5)
  1. IMFINZI [Suspect]
     Active Substance: DURVALUMAB
     Indication: Bile duct cancer
     Dosage: 1500 MILLIGRAM
     Dates: start: 20230502, end: 20230711
  2. GEMCITABINE HYDROCHLORIDE [Suspect]
     Active Substance: GEMCITABINE HYDROCHLORIDE
     Indication: Bile duct cancer
     Dosage: 1600 MILLIGRAM, Q3W
     Route: 065
     Dates: start: 20230502, end: 20230509
  3. GEMCITABINE HYDROCHLORIDE [Suspect]
     Active Substance: GEMCITABINE HYDROCHLORIDE
     Dosage: 2000 MILLIGRAM
     Route: 065
     Dates: start: 20230523, end: 20230718
  4. CISPLATIN [Suspect]
     Active Substance: CISPLATIN
     Indication: Bile duct cancer
     Dosage: 40 MILLIGRAM, Q3W
     Route: 065
     Dates: start: 20230502, end: 20230509
  5. CISPLATIN [Suspect]
     Active Substance: CISPLATIN
     Dosage: 50 MILLIGRAM, Q3W
     Route: 065
     Dates: start: 20230523, end: 20230718

REACTIONS (3)
  - Malignant neoplasm progression [Fatal]
  - Anaemia [Recovering/Resolving]
  - Proteinuria [Recovered/Resolved]

NARRATIVE: CASE EVENT DATE: 20230509
